FAERS Safety Report 24934368 (Version 5)
Quarter: 2025Q3

REPORT INFORMATION
  Report Type: Spontaneous
  Country: EU (occurrence: EU)
  Receive Date: 20250206
  Receipt Date: 20250919
  Transmission Date: 20251021
  Serious: Yes (Other)
  Sender: EXELIXIS
  Company Number: EU-IPSEN Group, Research and Development-2024-22653

PATIENT
  Age: 65 Year
  Sex: Male

DRUGS (2)
  1. CABOMETYX [Suspect]
     Active Substance: CABOZANTINIB S-MALATE
     Indication: Neuroendocrine tumour of the lung
     Dosage: 60 MG, QD
     Dates: start: 20241022, end: 202501
  2. CABOMETYX [Suspect]
     Active Substance: CABOZANTINIB S-MALATE
     Indication: Off label use

REACTIONS (7)
  - Hypothermia [Unknown]
  - Disease progression [Unknown]
  - Ageusia [Unknown]
  - Fatigue [Unknown]
  - Hypertension [Unknown]
  - Oedema peripheral [Unknown]
  - Off label use [Unknown]

NARRATIVE: CASE EVENT DATE: 20241022
